FAERS Safety Report 15623512 (Version 3)
Quarter: 2018Q4

REPORT INFORMATION
  Report Type: Report from Study
  Country: US (occurrence: US)
  Receive Date: 20181115
  Receipt Date: 20181218
  Transmission Date: 20190205
  Serious: Yes (Hospitalization)
  Sender: FDA-Public Use
  Company Number: US-ACTELION-A-NJ2017-153845

PATIENT
  Age: 42 Year
  Sex: Female
  Weight: 120.64 kg

DRUGS (12)
  1. OPSUMIT [Suspect]
     Active Substance: MACITENTAN
     Indication: PULMONARY ARTERIAL HYPERTENSION
     Dosage: 10 MG, QD
     Route: 048
     Dates: start: 20170429
  2. LEFLUNOMIDE. [Concomitant]
     Active Substance: LEFLUNOMIDE
  3. PREDNISONE. [Concomitant]
     Active Substance: PREDNISONE
  4. XELJANZ [Concomitant]
     Active Substance: TOFACITINIB CITRATE
  5. SILDENAFIL. [Suspect]
     Active Substance: SILDENAFIL
     Indication: PRODUCT USED FOR UNKNOWN INDICATION
     Route: 065
  6. ONDASETRON [Concomitant]
     Active Substance: ONDANSETRON
  7. UPTRAVI [Suspect]
     Active Substance: SELEXIPAG
     Indication: PULMONARY ARTERIAL HYPERTENSION
     Dosage: 1600 MCG, BID
     Route: 048
     Dates: start: 20161214
  8. ELIQUIS [Concomitant]
     Active Substance: APIXABAN
  9. POTASSIUM CHLORIDE. [Concomitant]
     Active Substance: POTASSIUM CHLORIDE
  10. PRILOSEC [Concomitant]
     Active Substance: OMEPRAZOLE MAGNESIUM
  11. HYDROXYCHLOROQUINE [Concomitant]
     Active Substance: HYDROXYCHLOROQUINE
  12. LEVOCETIRIZINE [Concomitant]
     Active Substance: LEVOCETIRIZINE

REACTIONS (13)
  - Cardiac failure acute [Recovered/Resolved]
  - Dyspnoea exertional [Recovered/Resolved]
  - Haemoglobin decreased [Not Recovered/Not Resolved]
  - Iron deficiency anaemia [Not Recovered/Not Resolved]
  - Chest discomfort [Unknown]
  - Haematocrit decreased [Not Recovered/Not Resolved]
  - Oedema peripheral [Recovered/Resolved]
  - Fluid overload [Recovered/Resolved]
  - Cellulitis [Not Recovered/Not Resolved]
  - Weight increased [Recovered/Resolved]
  - Menorrhagia [Not Recovered/Not Resolved]
  - Genital disorder female [Unknown]
  - Acute sinusitis [Unknown]

NARRATIVE: CASE EVENT DATE: 20170502
